FAERS Safety Report 9356624 (Version 1)
Quarter: 2013Q2

REPORT INFORMATION
  Report Type: Spontaneous
  Country: GB (occurrence: None)
  Receive Date: 20130617
  Receipt Date: 20130617
  Transmission Date: 20140414
  Serious: Yes (Other)
  Sender: FDA-Public Use
  Company Number: AUR-APL-2013-04851

PATIENT
  Age: 68 Year
  Sex: Female
  Weight: 70 kg

DRUGS (12)
  1. AMOXICILLIN+CLAVULANIC ACID [Suspect]
     Indication: PRODUCT USED FOR UNKNOWN INDICATION
     Dates: start: 20130523
  2. AMITRIPTYLINE HYDROCHLORIDE (AMITRIPTYLINE HYDROCHLORIDE) [Concomitant]
  3. ATORVASTATIN (ATORVASTATIN) [Concomitant]
  4. CITALOPRAM (CITALOPRAM) [Concomitant]
  5. CLONIDINE (CLONIDINE) INJECTION [Concomitant]
  6. DIAZEPAM ( DIAZEPAM) [Concomitant]
  7. DIHYDROCODEINE (DIHYDROCODEINE) [Concomitant]
  8. GAVISCON ADVANCE (GAVISCON ADVANCE) [Concomitant]
  9. GLICLAZIDE (GLICLAZIDE) [Concomitant]
  10. LEVEMIR (INSULIN DETEMIR) [Concomitant]
  11. METFORMIN (METFORMIN) [Concomitant]
  12. SITAGLIPTIN (SITAGLIPTIN) [Concomitant]

REACTIONS (4)
  - Drug hypersensitivity [None]
  - Periorbital oedema [None]
  - Rash [None]
  - Tachycardia [None]
